FAERS Safety Report 9057419 (Version 3)
Quarter: 2013Q1

REPORT INFORMATION
  Report Type: Report from Study
  Country: CN (occurrence: CN)
  Receive Date: 20130204
  Receipt Date: 20130308
  Transmission Date: 20140127
  Serious: Yes (Hospitalization)
  Sender: FDA-Public Use
  Company Number: CN-ROCHE-1102482

PATIENT
  Age: 44 None
  Sex: Male
  Weight: 43 kg

DRUGS (4)
  1. BEVACIZUMAB [Suspect]
     Indication: COLON CANCER
     Route: 041
     Dates: start: 20120725, end: 20120815
  2. LEUCOVORIN [Suspect]
     Indication: COLON CANCER
     Route: 041
     Dates: start: 20120725, end: 20120824
  3. FLUOROURACIL [Suspect]
     Indication: COLON CANCER
     Route: 041
     Dates: start: 20120725, end: 20120824
  4. WARFARIN [Suspect]
     Indication: PRODUCT USED FOR UNKNOWN INDICATION
     Route: 065
     Dates: start: 20120815

REACTIONS (3)
  - Venous thrombosis [Not Recovered/Not Resolved]
  - Impaired healing [Recovered/Resolved]
  - Haematuria [Recovered/Resolved]
